FAERS Safety Report 8136595-4 (Version None)
Quarter: 2012Q1

REPORT INFORMATION
  Report Type: 
  Country: None (occurrence: None)
  Receive Date: 20120214
  Receipt Date: 20120213
  Transmission Date: 20120608
  Serious: Yes (Death, Hospitalization, Other)
  Sender: FDA-Public Use
  Company Number: PHFR2011GB03188

PATIENT
  Sex: Male

DRUGS (2)
  1. AMISULPRIDE [Suspect]
     Dosage: 50 MG/DAY
     Route: 048
  2. CLOZARIL [Suspect]
     Indication: SCHIZOPHRENIA
     Dosage: 950 MG/DAY
     Route: 048
     Dates: start: 19900906

REACTIONS (4)
  - DYSPNOEA [None]
  - LOWER RESPIRATORY TRACT INFECTION [None]
  - MICROCYTIC ANAEMIA [None]
  - LUNG NEOPLASM MALIGNANT [None]
